FAERS Safety Report 5257209-7 (Version None)
Quarter: 2007Q1

REPORT INFORMATION
  Report Type: 
  Country: None (occurrence: None)
  Receive Date: 20070307
  Receipt Date: 20070304
  Transmission Date: 20070707
  Serious: Yes (Death)
  Sender: FDA-Public Use
  Company Number: EG-GLAXOSMITHKLINE-B0460931A

PATIENT
  Age: 48 Year
  Sex: Female

DRUGS (1)
  1. WELLBUTRIN [Suspect]
     Dosage: 150MG TWICE PER DAY
     Dates: start: 20061101, end: 20070201

REACTIONS (3)
  - DEATH [None]
  - DEPRESSION [None]
  - SUDDEN DEATH [None]
